FAERS Safety Report 19066500 (Version 1)
Quarter: 2021Q1

REPORT INFORMATION
  Report Type: Report from Study
  Country: CA (occurrence: CA)
  Receive Date: 20210328
  Receipt Date: 20210328
  Transmission Date: 20210420
  Serious: Yes (Hospitalization, Other)
  Sender: FDA-Public Use
  Company Number: CA-TEVA-2021-CA-1892536

PATIENT
  Age: 46 Year
  Sex: Female

DRUGS (11)
  1. COPAXONE [Suspect]
     Active Substance: GLATIRAMER ACETATE
     Indication: MULTIPLE SCLEROSIS
     Dates: start: 20161021, end: 20210219
  2. NAPROXEN. [Concomitant]
     Active Substance: NAPROXEN
  3. VITAMIN D [Concomitant]
     Active Substance: VITAMIN D NOS
  4. SALBUTAMOL [Concomitant]
     Active Substance: ALBUTEROL
  5. PULMICORT TURBUHALER [Concomitant]
     Active Substance: BUDESONIDE
  6. PANTALOC [Concomitant]
  7. EPIVAL [Concomitant]
     Active Substance: DIVALPROEX SODIUM
  8. RIVOTRIL [Concomitant]
     Active Substance: CLONAZEPAM
  9. PROZAC [Concomitant]
     Active Substance: FLUOXETINE HYDROCHLORIDE
  10. LUVOX [Concomitant]
     Active Substance: FLUVOXAMINE MALEATE
  11. ALESSE 28 [Concomitant]
     Active Substance: ETHINYL ESTRADIOL\LEVONORGESTREL

REACTIONS (10)
  - Feeling abnormal [Recovered/Resolved]
  - Injection site erythema [Unknown]
  - Palpitations [Recovered/Resolved]
  - Throat tightness [Recovered/Resolved]
  - Erythema [Recovered/Resolved]
  - Fall [Recovered/Resolved]
  - Blood pressure increased [Unknown]
  - Feeling hot [Recovered/Resolved]
  - Paraesthesia [Recovered/Resolved]
  - Injection site mass [Unknown]

NARRATIVE: CASE EVENT DATE: 202102
